FAERS Safety Report 10077193 (Version 1)
Quarter: 2014Q2

REPORT INFORMATION
  Report Type: Spontaneous
  Country: IT (occurrence: IT)
  Receive Date: 20140414
  Receipt Date: 20140414
  Transmission Date: 20141212
  Serious: Yes (Hospitalization)
  Sender: FDA-Public Use
  Company Number: IT-ACTAVIS-2014-07094

PATIENT
  Age: 66 Year
  Sex: Male
  Weight: 63 kg

DRUGS (6)
  1. GEMCITABINE (UNKNOWN) [Suspect]
     Indication: ADENOCARCINOMA PANCREAS
     Dosage: 1600 MG, CYCLICAL
     Route: 042
     Dates: start: 20131220, end: 20140307
  2. CREON [Concomitant]
     Indication: PRODUCT USED FOR UNKNOWN INDICATION
     Dosage: 4 DF, UNK
     Route: 048
     Dates: start: 20130101, end: 20140307
  3. LEGALON [Concomitant]
     Indication: PRODUCT USED FOR UNKNOWN INDICATION
     Dosage: 1 DF, UNK
     Route: 048
     Dates: start: 20130101, end: 20140307
  4. CARDIOASPIRIN [Concomitant]
     Indication: PRODUCT USED FOR UNKNOWN INDICATION
     Dosage: 1 DF, UNK
     Route: 048
     Dates: start: 20130101, end: 20140307
  5. LASIX                              /00032601/ [Concomitant]
     Indication: HYPERTENSION
     Dosage: 1 DF, UNK
     Route: 048
     Dates: start: 20130101, end: 20140215
  6. RAMIPRIL [Concomitant]
     Indication: HYPERTENSION
     Dosage: 1 DF, UNK
     Route: 048
     Dates: start: 20130101, end: 20140215

REACTIONS (1)
  - Pancytopenia [Recovering/Resolving]
